FAERS Safety Report 7288834 (Version 4)
Quarter: 2013Q3

REPORT INFORMATION
  Report Type: Spontaneous
  Country: CA (occurrence: CA)
  Receive Date: 20100222
  Receipt Date: 20130806
  Transmission Date: 20140515
  Serious: Yes (Hospitalization, Other)
  Sender: FDA-Public Use
  Company Number: CA-PFIZER INC-2010019132

PATIENT
  Sex: Female

DRUGS (1)
  1. CHAMPIX [Suspect]
     Indication: SMOKING CESSATION THERAPY
     Dosage: UNK
     Dates: start: 200805, end: 200805

REACTIONS (12)
  - Suicidal ideation [Unknown]
  - Depression [Unknown]
  - Bipolar disorder [Unknown]
  - Catatonia [Unknown]
  - Abnormal behaviour [Unknown]
  - Decreased activity [Unknown]
  - Affective disorder [Unknown]
  - Loss of employment [Unknown]
  - Anxiety [Unknown]
  - Crying [Unknown]
  - Conversion disorder [Unknown]
  - Bedridden [Unknown]
